FAERS Safety Report 5559382-X (Version None)
Quarter: 2007Q4

REPORT INFORMATION
  Report Type: 
  Country: None (occurrence: None)
  Receive Date: 20071214
  Receipt Date: 20070927
  Transmission Date: 20080405
  Serious: No
  Sender: FDA-Public Use
  Company Number: US-ABBOTT-07P-163-0419174-00

PATIENT
  Sex: Female
  Weight: 106.8 kg

DRUGS (6)
  1. HUMIRA [Suspect]
     Indication: RHEUMATOID ARTHRITIS
     Route: 058
     Dates: start: 20070816
  2. OLMESARTAN MEDOXOMIL [Concomitant]
     Indication: HYPERTENSION
     Route: 058
  3. GLIPERIDE/METFORMIN [Concomitant]
     Indication: DIABETES MELLITUS
     Dosage: 2.5/500 MG
  4. FISH OIL [Concomitant]
     Indication: BLOOD CHOLESTEROL
     Route: 048
  5. MULTI-VITAMIN [Concomitant]
     Indication: VITAMIN SUPPLEMENTATION
     Route: 048
  6. LINUM USITATISSIMUM SEED OIL [Concomitant]
     Indication: PROPHYLAXIS
     Route: 048

REACTIONS (2)
  - COUGH [None]
  - TOOTHACHE [None]
